FAERS Safety Report 12201577 (Version 1)
Quarter: 2016Q1

REPORT INFORMATION
  Report Type: Spontaneous
  Country: US (occurrence: US)
  Receive Date: 20160322
  Receipt Date: 20160322
  Transmission Date: 20160526
  Serious: No
  Sender: FDA-Public Use
  Company Number: US-SA-2015SA108341

PATIENT
  Age: 27 Year
  Sex: Male

DRUGS (1)
  1. NASACORT ALLERGY 24HR [Suspect]
     Active Substance: TRIAMCINOLONE ACETONIDE
     Dosage: PRODUCT START DATE: ABOUT 2 WEEKS AGO?DOSE: 2 SHOTS IN EACH NOSTRIL AROUND 8AM
     Route: 045

REACTIONS (2)
  - Migraine [Unknown]
  - Hallucination, visual [Unknown]
